FAERS Safety Report 7819450-6 (Version None)
Quarter: 2011Q4

REPORT INFORMATION
  Report Type: 
  Country: None (occurrence: None)
  Receive Date: 20111018
  Receipt Date: 20110812
  Transmission Date: 20120403
  Serious: No
  Sender: FDA-Public Use
  Company Number: US-ASTRAZENECA-2011SE48711

PATIENT
  Age: 38 Year
  Sex: Female

DRUGS (2)
  1. SYMBICORT [Suspect]
     Route: 055
  2. SEROQUEL [Suspect]
     Route: 048

REACTIONS (5)
  - SOMNOLENCE [None]
  - ASTHENIA [None]
  - OFF LABEL USE [None]
  - INSOMNIA [None]
  - CHRONIC OBSTRUCTIVE PULMONARY DISEASE [None]
